FAERS Safety Report 5598362-5 (Version None)
Quarter: 2008Q1

REPORT INFORMATION
  Report Type: 
  Country: None (occurrence: None)
  Receive Date: 20080122
  Receipt Date: 20080110
  Transmission Date: 20080703
  Serious: Yes (Hospitalization, Other)
  Sender: FDA-Public Use
  Company Number: US-AVENTIS-200712052GDDC

PATIENT
  Age: 53 Year
  Sex: Female
  Weight: 70.3 kg

DRUGS (4)
  1. TAXOTERE [Suspect]
     Indication: OVARIAN CANCER
     Route: 042
     Dates: start: 20070103, end: 20070103
  2. OXALIPLATIN [Suspect]
     Indication: OVARIAN CANCER
     Route: 042
     Dates: start: 20070103, end: 20070103
  3. BEVACIZUMAB [Suspect]
     Indication: OVARIAN CANCER
     Route: 042
     Dates: start: 20070103, end: 20070103
  4. OXYCODONE [Concomitant]
     Dosage: DOSE: 5/325

REACTIONS (1)
  - WOUND EVISCERATION [None]
